FAERS Safety Report 5180946-X (Version None)
Quarter: 2006Q4

REPORT INFORMATION
  Report Type: 
  Country: None (occurrence: None)
  Receive Date: 20061218
  Receipt Date: 20061218
  Transmission Date: 20070319
  Serious: Yes (Hospitalization)
  Sender: FDA-Public Use
  Company Number: None

PATIENT
  Sex: Female
  Weight: 45.3 kg

DRUGS (10)
  1. METHOTREXATE [Suspect]
     Dosage: 45 MG
  2. PEG-L ASPARAGINASE (K-H) [Suspect]
     Dosage: 211500 UNIT
  3. THIOGUANINE [Suspect]
     Dosage: 1260 MG
  4. VINCRISTINE SULFATE [Suspect]
     Dosage: 6 MG
  5. . [Concomitant]
  6. CYCLOPHOSPHAMIDE [Suspect]
     Dosage: 1480 MG
  7. CYTARABINE [Suspect]
     Dosage: 880 MG
  8. DEXAMETHASONE [Suspect]
     Dosage: 196 MG
  9. DOXORUBICIN HYDROCHLORIDE [Suspect]
     Dosage: 105 MG
  10. LEUCOVORIN CALCIUM [Suspect]
     Dosage: 7.5 MG

REACTIONS (14)
  - BRAIN OEDEMA [None]
  - DRUG TOXICITY [None]
  - EYE DISORDER [None]
  - HEADACHE [None]
  - HEMIPARESIS [None]
  - HYPOAESTHESIA [None]
  - HYPOAESTHESIA FACIAL [None]
  - INJURY [None]
  - NAUSEA [None]
  - NERVOUS SYSTEM DISORDER [None]
  - NUCLEAR MAGNETIC RESONANCE IMAGING BRAIN ABNORMAL [None]
  - PARALYSIS [None]
  - PARESIS [None]
  - VOMITING [None]
